FAERS Safety Report 14706553 (Version 2)
Quarter: 2018Q2

REPORT INFORMATION
  Report Type: Spontaneous
  Country: GB (occurrence: GB)
  Receive Date: 20180402
  Receipt Date: 20180424
  Transmission Date: 20180711
  Serious: Yes (Hospitalization)
  Sender: FDA-Public Use
  Company Number: GB-BAUSCH-BL-2018-007888

PATIENT
  Sex: Female

DRUGS (2)
  1. MOVIPREP [Suspect]
     Active Substance: ASCORBIC ACID\POLYETHYLENE GLYCOL 3350\POTASSIUM CHLORIDE\SODIUM ASCORBATE\SODIUM CHLORIDE\SODIUM SULFATE
     Dosage: IN THE  MORNING
     Route: 065
     Dates: start: 20180206, end: 20180206
  2. MOVIPREP [Suspect]
     Active Substance: ASCORBIC ACID\POLYETHYLENE GLYCOL 3350\POTASSIUM CHLORIDE\SODIUM ASCORBATE\SODIUM CHLORIDE\SODIUM SULFATE
     Indication: BOWEL PREPARATION
     Dosage: IN THE EVENING
     Route: 065
     Dates: start: 20180205, end: 20180205

REACTIONS (9)
  - Colitis ulcerative [Recovered/Resolved]
  - Intestinal ulcer [Recovered/Resolved]
  - Diarrhoea [Recovered/Resolved]
  - Proctitis [Unknown]
  - Gastrointestinal inflammation [Recovered/Resolved]
  - Megacolon [Recovered/Resolved]
  - Feeling abnormal [Recovered/Resolved]
  - Pain [Recovered/Resolved]
  - C-reactive protein increased [Unknown]

NARRATIVE: CASE EVENT DATE: 201802
